FAERS Safety Report 12477385 (Version 4)
Quarter: 2016Q4

REPORT INFORMATION
  Report Type: Report from Study
  Country: US (occurrence: US)
  Receive Date: 20160617
  Receipt Date: 20161026
  Transmission Date: 20170207
  Serious: Yes (Death, Life-Threatening, Hospitalization, Disabling)
  Sender: FDA-Public Use
  Company Number: PHHO2016US008772

PATIENT
  Age: 69 Year
  Sex: Female
  Weight: 58.1 kg

DRUGS (9)
  1. ONDANSETRON [Concomitant]
     Active Substance: ONDANSETRON
     Indication: VOMITING
     Dosage: 8 MG, UNK
     Route: 065
     Dates: start: 20160509, end: 20160610
  2. CANNABIS [Concomitant]
     Active Substance: CANNABIS SATIVA SUBSP. INDICA TOP
     Indication: VOMITING
     Dosage: GIT, TID
     Route: 065
     Dates: start: 20160205, end: 20160610
  3. ONDANSETRON [Concomitant]
     Active Substance: ONDANSETRON
     Indication: NAUSEA
  4. ZYKADIA [Suspect]
     Active Substance: CERITINIB
     Indication: NEOPLASM MALIGNANT
     Dosage: 750 MG, QD
     Route: 048
     Dates: start: 20160217, end: 20160226
  5. CANNABIS [Concomitant]
     Active Substance: CANNABIS SATIVA SUBSP. INDICA TOP
     Indication: NAUSEA
  6. LOPERAMIDE [Concomitant]
     Active Substance: LOPERAMIDE
     Indication: DIARRHOEA
     Route: 065
  7. ZYKADIA [Suspect]
     Active Substance: CERITINIB
     Dosage: 750 MG, QD
     Route: 048
     Dates: start: 20160405, end: 20160425
  8. ZYKADIA [Suspect]
     Active Substance: CERITINIB
     Dosage: 600 MG, QD
     Route: 048
     Dates: start: 20160509, end: 20160520
  9. XARELTO [Concomitant]
     Active Substance: RIVAROXABAN
     Indication: PULMONARY EMBOLISM
     Dosage: 15 MG, BID
     Route: 065
     Dates: start: 20160525, end: 20160610

REACTIONS (4)
  - Liver injury [Not Recovered/Not Resolved]
  - Hepatic cirrhosis [Not Recovered/Not Resolved]
  - Disseminated intravascular coagulation [Fatal]
  - Transaminases increased [Not Recovered/Not Resolved]

NARRATIVE: CASE EVENT DATE: 20160607
